FAERS Safety Report 9806099 (Version 2)
Quarter: 2014Q1

REPORT INFORMATION
  Report Type: Spontaneous
  Country: PL (occurrence: PL)
  Receive Date: 20140109
  Receipt Date: 20140114
  Transmission Date: 20141002
  Serious: Yes (Hospitalization)
  Sender: FDA-Public Use
  Company Number: PHHY2014PL000595

PATIENT
  Age: 82 Year
  Sex: Male

DRUGS (3)
  1. NEORAL [Suspect]
     Indication: ERYTHEMA
     Dosage: 4 MG/KG BODY WEIGHT, UNK
  2. METHYLPREDNISOLONE [Suspect]
     Indication: ERYTHEMA
     Dosage: 48 MG, UNK
  3. CEFUROXIME [Suspect]
     Indication: ERYTHEMA
     Dosage: 0.5 MG, BID

REACTIONS (11)
  - Acute generalised exanthematous pustulosis [Recovering/Resolving]
  - Rash erythematous [Recovering/Resolving]
  - Rash pustular [Recovering/Resolving]
  - Skin exfoliation [Recovering/Resolving]
  - Leukocytosis [Unknown]
  - Neutrophilia [Unknown]
  - Red blood cell sedimentation rate increased [Unknown]
  - Blood creatinine increased [Unknown]
  - Anaemia [Unknown]
  - Metastatic carcinoma of the bladder [Unknown]
  - Metastases to lung [Unknown]
